FAERS Safety Report 11992877 (Version 2)
Quarter: 2016Q1

REPORT INFORMATION
  Report Type: Report from Study
  Country: US (occurrence: US)
  Receive Date: 20160203
  Receipt Date: 20160211
  Transmission Date: 20160526
  Serious: No
  Sender: FDA-Public Use
  Company Number: PHEH2014US007435

PATIENT
  Sex: Female

DRUGS (2)
  1. TOBI [Suspect]
     Active Substance: TOBRAMYCIN
     Indication: BRONCHIECTASIS
  2. TOBI [Suspect]
     Active Substance: TOBRAMYCIN
     Indication: BRONCHOPULMONARY ASPERGILLOSIS ALLERGIC
     Dosage: 300 MG, BID
     Route: 055

REACTIONS (5)
  - Sinusitis [Unknown]
  - Malaise [Unknown]
  - Dyspnoea [Unknown]
  - Bronchitis [Unknown]
  - Influenza [Unknown]
